FAERS Safety Report 16715329 (Version 1)
Quarter: 2019Q3

REPORT INFORMATION
  Report Type: Report from Study
  Country: US (occurrence: US)
  Receive Date: 20190819
  Receipt Date: 20190819
  Transmission Date: 20191005
  Serious: Yes (Other)
  Sender: FDA-Public Use
  Company Number: US-JNJFOC-20190706392

PATIENT
  Age: 73 Year
  Sex: Female

DRUGS (1)
  1. IMBRUVICA [Suspect]
     Active Substance: IBRUTINIB
     Indication: CHRONIC LYMPHOCYTIC LEUKAEMIA
     Dosage: 420 MG, QD
     Route: 048
     Dates: start: 20190617

REACTIONS (6)
  - Inappropriate schedule of product administration [Unknown]
  - Fatigue [Unknown]
  - Off label use [Unknown]
  - Red blood cell count decreased [Not Recovered/Not Resolved]
  - White blood cell count increased [Recovering/Resolving]
  - Basal cell carcinoma [Unknown]

NARRATIVE: CASE EVENT DATE: 20190617
